FAERS Safety Report 7652486-7 (Version None)
Quarter: 2011Q3

REPORT INFORMATION
  Report Type: 
  Country: None (occurrence: None)
  Receive Date: 20110722
  Receipt Date: 20101220
  Transmission Date: 20111222
  Serious: Yes (Hospitalization)
  Sender: FDA-Public Use
  Company Number: UTC-003617

PATIENT
  Age: 27 Year
  Sex: Male
  Weight: 77.3 kg

DRUGS (3)
  1. REMODULIN [Suspect]
     Indication: PULMONARY ARTERIAL HYPERTENSION
     Dosage: 73.44 UG/KG (0.051 UG/KG, 1 IN 1 MIN), SUBCUTANEOUS
     Route: 058
     Dates: start: 20101216
  2. REVATIO [Concomitant]
  3. TRACLEER [Concomitant]

REACTIONS (2)
  - INJECTION SITE PAIN [None]
  - INJECTION SITE REACTION [None]
